FAERS Safety Report 25006506 (Version 1)
Quarter: 2025Q1

REPORT INFORMATION
  Report Type: Spontaneous
  Country: GB (occurrence: GB)
  Receive Date: 20250224
  Receipt Date: 20250224
  Transmission Date: 20250409
  Serious: Yes (Other)
  Sender: ORGANON
  Company Number: None

PATIENT
  Age: 91 Year
  Sex: Female
  Weight: 86 kg

DRUGS (24)
  1. LOSARTAN POTASSIUM [Interacting]
     Active Substance: LOSARTAN POTASSIUM
     Dosage: 100 MILLIGRAM, QD
     Dates: start: 20230906
  2. DICLOFENAC SODIUM [Concomitant]
     Active Substance: DICLOFENAC SODIUM
     Dosage: ONE THREE TIMES A DAY AS REQUIRED
     Dates: start: 20000721, end: 20250219
  3. VOLTAROL [Concomitant]
     Active Substance: DICLOFENAC SODIUM
     Indication: Ill-defined disorder
     Dosage: PRN
     Dates: start: 20040202, end: 20250219
  4. CODEINE PHOSPHATE [Concomitant]
     Active Substance: CODEINE PHOSPHATE
     Indication: Ill-defined disorder
     Dates: start: 20040401, end: 20250219
  5. GLICLAZIDE [Concomitant]
     Active Substance: GLICLAZIDE
     Indication: Ill-defined disorder
     Dosage: ONE TO BE TAKEN TWICE A DAY
     Dates: start: 20050707, end: 20250219
  6. GLUCOPHAGE [Concomitant]
     Active Substance: METFORMIN HYDROCHLORIDE
     Indication: Ill-defined disorder
     Dosage: ONE TO BE TAKEN DAILY
     Dates: start: 20050707, end: 20250219
  7. NITROGLYCERIN [Concomitant]
     Active Substance: NITROGLYCERIN
     Indication: Ill-defined disorder
     Dosage: 1 SPRAY AS REQUIRED
     Dates: start: 20070302, end: 20250219
  8. CLOPIDOGREL [Concomitant]
     Active Substance: CLOPIDOGREL BISULFATE
     Indication: Ill-defined disorder
     Dosage: ONE TO BE TAKEN DAILY
     Dates: start: 20080912, end: 20250219
  9. ACETAMINOPHEN [Concomitant]
     Active Substance: ACETAMINOPHEN
     Indication: Ill-defined disorder
     Dates: start: 20151216, end: 20250219
  10. POLYETHYLENE GLYCOL 3350\POTASSIUM CHLORIDE\SODIUM BICARBONATE\SODIUM [Concomitant]
     Active Substance: POLYETHYLENE GLYCOL 3350\POTASSIUM CHLORIDE\SODIUM BICARBONATE\SODIUM CHLORIDE
     Indication: Ill-defined disorder
     Dates: start: 20171228, end: 20250219
  11. TRELEGY ELLIPTA [Concomitant]
     Active Substance: FLUTICASONE FUROATE\UMECLIDINIUM BROMIDE\VILANTEROL TRIFENATATE
     Indication: Ill-defined disorder
     Dosage: 1 ONCE DAILY
     Dates: start: 20190221, end: 20250219
  12. VICTOZA [Concomitant]
     Active Substance: LIRAGLUTIDE
     Indication: Ill-defined disorder
     Dosage: 1.2 MG (0.2 ML) DAILY BY SUBCUTANEOUS INJECTION
     Dates: start: 20190620, end: 20250219
  13. CYANOCOBALAMIN [Concomitant]
     Active Substance: CYANOCOBALAMIN
     Indication: Ill-defined disorder
     Dosage: 1 DAILY TO PREVENT B12 DEFICIENCY FOR 2 MONTHS
     Dates: start: 20211212, end: 20250219
  14. ALBUTEROL [Concomitant]
     Active Substance: ALBUTEROL
     Indication: Ill-defined disorder
     Dates: start: 20220606, end: 20250219
  15. CARBOCYSTEINE [Concomitant]
     Active Substance: CARBOCYSTEINE
     Indication: Ill-defined disorder
     Dosage: TWO TO BE TAKEN TWICE A DAY TO HELP LOOSEN CATARRH
     Dates: start: 20221111, end: 20250219
  16. HYPROMELLOSES [Concomitant]
     Active Substance: HYPROMELLOSES
     Indication: Ill-defined disorder
     Dates: start: 20221111, end: 20250219
  17. INSULIN GLARGINE [Concomitant]
     Active Substance: INSULIN GLARGINE
     Indication: Ill-defined disorder
     Route: 058
     Dates: start: 20230103, end: 20250219
  18. AMITRIPTYLINE HYDROCHLORIDE [Concomitant]
     Active Substance: AMITRIPTYLINE HYDROCHLORIDE
     Indication: Ill-defined disorder
     Dosage: ONE TO BE TAKEN AT NIGHT TO HELP SLEEP NOW AND ...
     Dates: start: 20231204, end: 20250219
  19. APIXABAN [Concomitant]
     Active Substance: APIXABAN
     Indication: Ill-defined disorder
     Dosage: ONE TO BE TAKEN TWICE A DAY
     Dates: start: 20240614, end: 20250219
  20. BISOPROLOL [Concomitant]
     Active Substance: BISOPROLOL
     Indication: Ill-defined disorder
     Dosage: ONE TO BE TAKEN IN THE MORNING
     Dates: start: 20240614, end: 20250219
  21. LANSOPRAZOLE [Concomitant]
     Active Substance: LANSOPRAZOLE
     Indication: Ill-defined disorder
     Dosage: ONE TO BE TAKEN EACH MORNING
     Dates: start: 20240614, end: 20250219
  22. DAPAGLIFLOZIN [Concomitant]
     Active Substance: DAPAGLIFLOZIN
     Indication: Ill-defined disorder
     Dosage: ONE TO BE TAKEN DAILY
     Dates: start: 20240704, end: 20250219
  23. FUROSEMIDE [Concomitant]
     Active Substance: FUROSEMIDE
     Indication: Ill-defined disorder
     Dosage: TAKE TWO TABLETS IN THE MORNING (80MG) AND TAK
     Dates: start: 20241015, end: 20250219
  24. EPLERENONE [Concomitant]
     Active Substance: EPLERENONE
     Indication: Ill-defined disorder
     Dosage: ONE TO BE TAKEN EACH DAY FOR HEART FAILURE - ST
     Dates: start: 20241128, end: 20250219

REACTIONS (1)
  - Drug interaction [Unknown]
